FAERS Safety Report 16290451 (Version 2)
Quarter: 2019Q2

REPORT INFORMATION
  Report Type: Spontaneous
  Country: US (occurrence: US)
  Receive Date: 20190509
  Receipt Date: 20190516
  Transmission Date: 20190711
  Serious: No
  Sender: FDA-Public Use
  Company Number: US-GLAXOSMITHKLINE-US2019080685

PATIENT
  Age: 73 Year
  Sex: Male

DRUGS (1)
  1. ANORO ELLIPTA [Suspect]
     Active Substance: UMECLIDINIUM BROMIDE\VILANTEROL TRIFENATATE
     Indication: EMPHYSEMA
     Dosage: UNK
     Route: 065
     Dates: start: 2016

REACTIONS (5)
  - Benign prostatic hyperplasia [Unknown]
  - Urinary tract disorder [Unknown]
  - Haematuria [Unknown]
  - Prostatic disorder [Unknown]
  - Bladder disorder [Unknown]
